FAERS Safety Report 4739890-1 (Version None)
Quarter: 2005Q3

REPORT INFORMATION
  Report Type: 
  Country: None (occurrence: None)
  Receive Date: 20050729
  Receipt Date: 20050323
  Transmission Date: 20060218
  Serious: Yes (Other)
  Sender: FDA-Public Use
  Company Number: 2005S1001488

PATIENT
  Age: 70 Year
  Sex: Female

DRUGS (6)
  1. APOMORPHINE HYDROCHLORIDE (APOMORPHINE HYDROCHLORIDE) [Suspect]
     Indication: PARKINSON'S DISEASE
     Dosage: 75 MG/DAY;SC
     Dates: start: 20040801
  2. SELEGILINE HCL [Concomitant]
  3. CARBIDOPA AND LEVODOPA [Concomitant]
  4. LEVODOPA/BENSERAZIDE HYDROCHLORIDE [Concomitant]
  5. . [Concomitant]
  6. AMANTADINE [Concomitant]

REACTIONS (1)
  - HAIR TEXTURE ABNORMAL [None]
